FAERS Safety Report 16266080 (Version 1)
Quarter: 2019Q2

REPORT INFORMATION
  Report Type: Spontaneous
  Country: TW (occurrence: TW)
  Receive Date: 20190502
  Receipt Date: 20190502
  Transmission Date: 20190711
  Serious: Yes (Other)
  Sender: FDA-Public Use
  Company Number: TW-FRESENIUS KABI-FK201905075

PATIENT
  Age: 60 Year
  Sex: Female

DRUGS (1)
  1. DIPHENHYDRAMINE INJECTION (MANUFACTURER UNKNOWN) [Suspect]
     Active Substance: DIPHENHYDRAMINE
     Indication: RHEUMATOID ARTHRITIS
     Dosage: 30-90 MG/DAY
     Route: 042

REACTIONS (8)
  - Agitation [Recovered/Resolved]
  - Restlessness [Recovered/Resolved]
  - Device related infection [Recovered/Resolved]
  - Withdrawal syndrome [Recovered/Resolved]
  - Poor quality sleep [Recovered/Resolved]
  - Product use in unapproved indication [Recovered/Resolved]
  - Drug abuse [Recovered/Resolved]
  - Drug dependence [Recovered/Resolved]
